FAERS Safety Report 20738632 (Version 12)
Quarter: 2023Q4

REPORT INFORMATION
  Report Type: Spontaneous
  Country: CA (occurrence: CA)
  Receive Date: 20220422
  Receipt Date: 20231024
  Transmission Date: 20240109
  Serious: Yes (Other)
  Sender: FDA-Public Use
  Company Number: CA-CELLTRION INC.-2021CA019085

PATIENT

DRUGS (15)
  1. INFLECTRA [Suspect]
     Active Substance: INFLIXIMAB-DYYB
     Indication: Rheumatoid arthritis
     Dosage: 200 MG, EVERY 0, 2, 6 THEN EVERY 9 WEEKS
     Route: 042
     Dates: start: 20180419, end: 20200403
  2. INFLECTRA [Suspect]
     Active Substance: INFLIXIMAB-DYYB
     Dosage: 200 MG, EVERY 10 WEEKS
     Route: 042
     Dates: start: 20200609
  3. INFLECTRA [Suspect]
     Active Substance: INFLIXIMAB-DYYB
     Dosage: 200 MG, EVERY 10 WEEKS
     Route: 042
     Dates: start: 20211019
  4. INFLECTRA [Suspect]
     Active Substance: INFLIXIMAB-DYYB
     Dosage: 200 MG, EVERY 10 WEEKS
     Route: 042
     Dates: start: 20211228
  5. INFLECTRA [Suspect]
     Active Substance: INFLIXIMAB-DYYB
     Dosage: 200 MG, EVERY 10 WEEKS
     Route: 042
     Dates: start: 20220304
  6. INFLECTRA [Suspect]
     Active Substance: INFLIXIMAB-DYYB
     Dosage: 200 MG, EVERY 10 WEEKS
     Route: 042
     Dates: start: 20220530
  7. INFLECTRA [Suspect]
     Active Substance: INFLIXIMAB-DYYB
     Dosage: 200 MG, EVERY 10 WEEKS
     Route: 042
     Dates: start: 20221017
  8. INFLECTRA [Suspect]
     Active Substance: INFLIXIMAB-DYYB
     Dosage: 200 MG, EVERY 10 WEEKS
     Route: 042
     Dates: start: 20230116
  9. INFLECTRA [Suspect]
     Active Substance: INFLIXIMAB-DYYB
     Dosage: 200 MG, EVERY 10 WEEKS
     Route: 042
     Dates: start: 20230116
  10. INFLECTRA [Suspect]
     Active Substance: INFLIXIMAB-DYYB
     Dosage: 200 MG, EVERY 10 WEEKS
     Route: 042
     Dates: start: 20230412
  11. INFLECTRA [Suspect]
     Active Substance: INFLIXIMAB-DYYB
     Dosage: 200 MG, EVERY 10 WEEKS
     Route: 042
     Dates: start: 20230828
  12. CALCIUM [Concomitant]
     Active Substance: CALCIUM
     Dosage: 1 DF
     Route: 065
  13. FOLIC ACID [Concomitant]
     Active Substance: FOLIC ACID
     Dosage: 1 DF
     Route: 065
  14. METHOTREXATE [Concomitant]
     Active Substance: METHOTREXATE
     Dosage: 1 DF
     Route: 065
  15. PANTOPRAZOLE [Concomitant]
     Active Substance: PANTOPRAZOLE
     Dosage: 1 DF
     Route: 065

REACTIONS (15)
  - Glaucoma [Recovered/Resolved]
  - Hypertension [Not Recovered/Not Resolved]
  - Arthralgia [Not Recovered/Not Resolved]
  - Eye pruritus [Not Recovered/Not Resolved]
  - COVID-19 [Recovered/Resolved]
  - Herpes zoster [Recovering/Resolving]
  - Dermatitis [Recovering/Resolving]
  - Bacterial test positive [Recovered/Resolved]
  - Urinary tract infection [Recovered/Resolved]
  - Pain [Not Recovered/Not Resolved]
  - Gait disturbance [Unknown]
  - Insomnia [Unknown]
  - Myalgia [Not Recovered/Not Resolved]
  - Inappropriate schedule of product administration [Unknown]
  - Off label use [Unknown]

NARRATIVE: CASE EVENT DATE: 20210101
